FAERS Safety Report 5193561-9 (Version None)
Quarter: 2006Q4

REPORT INFORMATION
  Report Type: 
  Country: None (occurrence: None)
  Receive Date: 20061228
  Receipt Date: 20060817
  Transmission Date: 20070319
  Serious: No
  Sender: FDA-Public Use
  Company Number: 2006-08-0517

PATIENT
  Sex: Female

DRUGS (6)
  1. FLOVENT [Suspect]
     Indication: DRUG USE FOR UNKNOWN INDICATION
     Route: 065
  2. CLARINEX [Suspect]
     Indication: DRUG USE FOR UNKNOWN INDICATION
     Route: 048
  3. SINGULAIR [Suspect]
     Indication: DRUG USE FOR UNKNOWN INDICATION
     Route: 065
  4. RHINOCORT [Suspect]
     Indication: DRUG USE FOR UNKNOWN INDICATION
     Route: 065
  5. ZYRTEC [Concomitant]
     Indication: DRUG USE FOR UNKNOWN INDICATION
  6. ALLEGRA [Concomitant]
     Indication: DRUG USE FOR UNKNOWN INDICATION

REACTIONS (2)
  - ABDOMINAL DISTENSION [None]
  - SWELLING [None]
